FAERS Safety Report 8599849-3 (Version None)
Quarter: 2012Q3

REPORT INFORMATION
  Report Type: 
  Country: None (occurrence: None)
  Receive Date: 20120816
  Receipt Date: 20120813
  Transmission Date: 20120928
  Serious: No
  Sender: FDA-Public Use
  Company Number: US-PFIZER INC-2012063272

PATIENT
  Age: 67 Year
  Sex: Female
  Weight: 70.748 kg

DRUGS (5)
  1. LYRICA [Suspect]
     Indication: NEURALGIA
     Dosage: 150 MG (TWO CAPSULES OF 75MG), 2X/DAY
     Route: 048
     Dates: start: 20100101, end: 20120809
  2. MORPHINE [Concomitant]
     Indication: BACK INJURY
     Dosage: 100 MG, 2X/DAY
  3. PROAIR HFA [Concomitant]
     Indication: ASTHMA
     Dosage: UNK
  4. FLEXERIL [Concomitant]
     Dosage: 10 MG, AS NEEDED
  5. SYMBICORT [Concomitant]
     Indication: ASTHMA
     Dosage: UNK, 2X/DAY

REACTIONS (4)
  - HYPOKINESIA [None]
  - NEURALGIA [None]
  - HYPERHIDROSIS [None]
  - MALAISE [None]
